FAERS Safety Report 4395795-X (Version None)
Quarter: 2004Q3

REPORT INFORMATION
  Report Type: 
  Country: None (occurrence: None)
  Receive Date: 20040708
  Receipt Date: 20040628
  Transmission Date: 20050211
  Serious: Yes (Death)
  Sender: FDA-Public Use
  Company Number: US-JNJFOC-20040608113

PATIENT
  Age: 62 Year
  Sex: Female

DRUGS (1)
  1. DURAGESIC [Suspect]
     Indication: PAIN
     Dosage: 1 IN 72 HOUR, TRANSDERMAL
     Route: 062
     Dates: end: 20030206

REACTIONS (4)
  - CEREBROVASCULAR ACCIDENT [None]
  - DYSPHAGIA [None]
  - MALNUTRITION [None]
  - MARKEDLY REDUCED DIETARY INTAKE [None]
